FAERS Safety Report 21179638 (Version 1)
Quarter: 2022Q3

REPORT INFORMATION
  Report Type: Spontaneous
  Country: US (occurrence: None)
  Receive Date: 20220805
  Receipt Date: 20220805
  Transmission Date: 20221026
  Serious: Yes (Hospitalization)
  Sender: FDA-Public Use
  Company Number: None

PATIENT
  Age: 55 Year
  Sex: Male

DRUGS (1)
  1. HUMIRA [Suspect]
     Active Substance: ADALIMUMAB
     Indication: Crohn^s disease
     Dosage: OTHER QUANTITY : 40MG/0.4ML;?FREQUENCY : WEEKLY;?RX2- INJECT 1 PEN UNDER THE SKIN (SUBCUTANEOUS INJE
     Route: 058
     Dates: start: 20220617

REACTIONS (2)
  - Crohn^s disease [None]
  - Therapy interrupted [None]

NARRATIVE: CASE EVENT DATE: 20220731
